FAERS Safety Report 10148890 (Version 1)
Quarter: 2014Q2

REPORT INFORMATION
  Report Type: Spontaneous
  Country: US (occurrence: US)
  Receive Date: 20140502
  Receipt Date: 20140502
  Transmission Date: 20141212
  Serious: No
  Sender: FDA-Public Use
  Company Number: US-BIOGENIDEC-2014BI035300

PATIENT
  Age: 49 Year
  Sex: Female

DRUGS (2)
  1. AVONEX [Suspect]
     Indication: MULTIPLE SCLEROSIS
     Route: 030
     Dates: start: 20140308, end: 20140318
  2. AVONEX [Suspect]
     Indication: MULTIPLE SCLEROSIS
     Route: 030
     Dates: start: 20140408

REACTIONS (12)
  - Laryngospasm [Recovered/Resolved]
  - Tremor [Recovered/Resolved]
  - Coordination abnormal [Unknown]
  - Cough [Unknown]
  - General symptom [Unknown]
  - Productive cough [Unknown]
  - Headache [Recovered/Resolved]
  - Pain [Recovered/Resolved]
  - Pyrexia [Unknown]
  - Chills [Unknown]
  - Paraesthesia [Unknown]
  - Confusional state [Unknown]
